FAERS Safety Report 4736324-8 (Version None)
Quarter: 2005Q3

REPORT INFORMATION
  Report Type: 
  Country: None (occurrence: None)
  Receive Date: 20050802
  Receipt Date: 20050720
  Transmission Date: 20060218
  Serious: Yes (Hospitalization)
  Sender: FDA-Public Use
  Company Number: 2005EU001651

PATIENT
  Age: 46 Year
  Sex: Male

DRUGS (4)
  1. FK506 (TACROLIMUS CAPSULES) [Suspect]
     Indication: RENAL TRANSPLANT
     Dosage: 5.00 MG, BID, ORAL
     Route: 048
     Dates: start: 20040819
  2. DACLIZUMAB(DACLIZUMAB) [Suspect]
     Indication: RENAL TRANSPLANT
     Dosage: 2.00 MG/KG, U/D/QD, IV NOS
     Route: 042
     Dates: start: 20040819
  3. MYCOPHENOLATE MOFETIL (MYCOPHENOLATE MOFETIL) [Suspect]
     Indication: RENAL TRANSPLANT
     Dosage: 1.00 G, BID, ORAL
     Route: 048
     Dates: start: 20040819
  4. PREDNISOLONE [Suspect]
     Indication: RENAL TRANSPLANT
     Dosage: 5.00 MG, U/D/QD, ORAL
     Route: 048
     Dates: start: 20040821

REACTIONS (2)
  - CONDITION AGGRAVATED [None]
  - HYPERPARATHYROIDISM [None]
